FAERS Safety Report 8840549 (Version 2)
Quarter: 2013Q4

REPORT INFORMATION
  Report Type: Report from Study
  Country: US (occurrence: US)
  Receive Date: 20121015
  Receipt Date: 20131216
  Transmission Date: 20140711
  Serious: Yes (Hospitalization)
  Sender: FDA-Public Use
  Company Number: US-ELI_LILLY_AND_COMPANY-US201208004476

PATIENT
  Age: 82 Year
  Sex: Female

DRUGS (13)
  1. TERIPARATIDE [Suspect]
     Indication: OSTEOPOROSIS
     Dosage: 20 UG, QD
     Route: 065
     Dates: start: 20120808, end: 20120810
  2. TERIPARATIDE [Suspect]
     Dosage: 20 UG, QD
     Route: 065
     Dates: end: 20120907
  3. TERIPARATIDE [Suspect]
     Dosage: 20 UG, QD
     Route: 065
  4. DIGOXIN [Concomitant]
  5. LOSARTAN [Concomitant]
  6. ATENOLOL [Concomitant]
  7. BABY ASPIRIN [Concomitant]
  8. VITAMIN D3 [Concomitant]
  9. ANTIOXIDANT                        /02147801/ [Concomitant]
  10. FISH OIL [Concomitant]
  11. CALCIUM [Concomitant]
  12. GLUCOSAMINE [Concomitant]
  13. OCTOVIT [Concomitant]

REACTIONS (3)
  - Knee arthroplasty [Unknown]
  - Drug dose omission [Unknown]
  - Adverse drug reaction [Unknown]
